FAERS Safety Report 5009481-6 (Version None)
Quarter: 2006Q2

REPORT INFORMATION
  Report Type: 
  Country: None (occurrence: None)
  Receive Date: 20060524
  Receipt Date: 20060518
  Transmission Date: 20061013
  Serious: Yes (Death)
  Sender: FDA-Public Use
  Company Number: 2006SE02846

PATIENT
  Age: 71 Year
  Sex: Female

DRUGS (8)
  1. BLOPRESS TABLETS 4 [Suspect]
     Indication: HYPERTENSION
     Route: 048
     Dates: start: 20060208, end: 20060217
  2. BLOPRESS TABLETS 4 [Suspect]
     Route: 048
     Dates: start: 20060218
  3. KETAS [Concomitant]
     Route: 065
  4. CEPHADOL [Concomitant]
     Route: 048
  5. RIKAVERIN [Concomitant]
     Route: 065
  6. NEUROVITAN [Concomitant]
     Route: 048
  7. CALONAL [Concomitant]
     Route: 065
  8. DEXALTIN [Concomitant]
     Route: 062

REACTIONS (1)
  - INTERSTITIAL LUNG DISEASE [None]
